FAERS Safety Report 13528271 (Version 1)
Quarter: 2017Q2

REPORT INFORMATION
  Report Type: Spontaneous
  Country: US (occurrence: US)
  Receive Date: 20170509
  Receipt Date: 20170509
  Transmission Date: 20170830
  Serious: Yes (Death, Other)
  Sender: FDA-Public Use
  Company Number: US-ASTRAZENECA-2017SE29629

PATIENT
  Age: 14494 Day
  Sex: Female

DRUGS (6)
  1. FASLODEX [Suspect]
     Active Substance: FULVESTRANT
     Indication: METASTASES TO BONE
     Route: 030
     Dates: start: 201612
  2. VALTREX [Concomitant]
     Active Substance: VALACYCLOVIR HYDROCHLORIDE
     Indication: HERPES ZOSTER
     Dates: start: 20160207, end: 20160213
  3. IBRANCE [Suspect]
     Active Substance: PALBOCICLIB
     Indication: BREAST CANCER FEMALE
     Dosage: 125 MG DAILY, FOR 21 DAYS, ON 7 DAYS OFF
     Route: 048
     Dates: start: 201612
  4. IBRANCE [Suspect]
     Active Substance: PALBOCICLIB
     Indication: METASTASES TO BONE
     Dosage: 125 MG DAILY, FOR 21 DAYS, ON 7 DAYS OFF
     Route: 048
     Dates: start: 201612
  5. FASLODEX [Suspect]
     Active Substance: FULVESTRANT
     Indication: BREAST CANCER FEMALE
     Route: 030
     Dates: start: 201612
  6. XARELTO [Concomitant]
     Active Substance: RIVAROXABAN
     Dates: start: 20160227

REACTIONS (11)
  - Deep vein thrombosis [Unknown]
  - Hyperglycaemia [Unknown]
  - Herpes zoster [Unknown]
  - Pain [Unknown]
  - Leukopenia [Unknown]
  - Diarrhoea [Unknown]
  - Alopecia [Unknown]
  - Energy increased [Unknown]
  - Death [Fatal]
  - Fatigue [Unknown]
  - Decreased appetite [Unknown]

NARRATIVE: CASE EVENT DATE: 20170205
